FAERS Safety Report 6640731-6 (Version None)
Quarter: 2010Q1

REPORT INFORMATION
  Report Type: 
  Country: None (occurrence: None)
  Receive Date: 20100318
  Receipt Date: 20100303
  Transmission Date: 20100710
  Serious: No
  Sender: FDA-Public Use
  Company Number: JP-JNJFOC-20100208680

PATIENT

DRUGS (3)
  1. FENTANYL CITRATE [Suspect]
     Indication: NEOPLASM MALIGNANT
     Route: 062
  2. FENTANYL CITRATE [Suspect]
     Route: 062
  3. OXYCODONE [Suspect]
     Indication: NEOPLASM MALIGNANT

REACTIONS (3)
  - DIZZINESS [None]
  - DRUG DISPENSING ERROR [None]
  - WITHDRAWAL SYNDROME [None]
